APPROVED DRUG PRODUCT: DEFERASIROX
Active Ingredient: DEFERASIROX
Strength: 180MG
Dosage Form/Route: TABLET;ORAL
Application: A210727 | Product #003
Applicant: JEROME STEVENS PHARMACEUTICALS INC
Approved: Jun 15, 2020 | RLD: No | RS: No | Type: DISCN